FAERS Safety Report 9605881 (Version 1)
Quarter: 2013Q4

REPORT INFORMATION
  Report Type: Spontaneous
  Country: US (occurrence: US)
  Receive Date: 20131008
  Receipt Date: 20131008
  Transmission Date: 20140711
  Serious: Yes (Other)
  Sender: FDA-Public Use
  Company Number: US-UCBSA-099137

PATIENT
  Age: 44 Year
  Sex: Female

DRUGS (1)
  1. CIMZIA [Suspect]
     Indication: CROHN^S DISEASE
     Dosage: DRUG STRENGTH: 400 MG

REACTIONS (9)
  - Pneumonia [Unknown]
  - Upper respiratory tract infection [Unknown]
  - Hepatic failure [Unknown]
  - Renal failure [Unknown]
  - Hepatitis B [Unknown]
  - Clostridium difficile infection [Unknown]
  - Plasma cell myeloma [Unknown]
  - Cardiac failure congestive [Unknown]
  - Diabetes mellitus [Unknown]
